FAERS Safety Report 15596896 (Version 3)
Quarter: 2019Q1

REPORT INFORMATION
  Report Type: Spontaneous
  Country: US (occurrence: US)
  Receive Date: 20181108
  Receipt Date: 20190319
  Transmission Date: 20190417
  Serious: Yes (Other)
  Sender: FDA-Public Use
  Company Number: US-AMGEN-USASP2018155632

PATIENT
  Sex: Female

DRUGS (21)
  1. AMBIEN [Concomitant]
     Active Substance: ZOLPIDEM TARTRATE
     Dosage: UNK UNK, AS NECESSARY
  2. MTX [Suspect]
     Active Substance: METHOTREXATE SODIUM
     Indication: PRODUCT USED FOR UNKNOWN INDICATION
     Dosage: UNK
     Route: 065
     Dates: start: 201012
  3. CALCIUM [Concomitant]
     Active Substance: CALCIUM
  4. FAMOTIDINE. [Concomitant]
     Active Substance: FAMOTIDINE
     Dosage: 20 MILLIGRAM, QD
  5. TRAMADOL. [Concomitant]
     Active Substance: TRAMADOL
     Indication: ARTHRALGIA
     Dosage: 50 MILLIGRAM, AS NECESSARY
  6. HUMIRA [Concomitant]
     Active Substance: ADALIMUMAB
     Dosage: 40 MG/DL, Q2WK
  7. ARAVA [Concomitant]
     Active Substance: LEFLUNOMIDE
     Dosage: UNK
  8. LEFLUNOMIDE. [Concomitant]
     Active Substance: LEFLUNOMIDE
  9. METROGEL [Concomitant]
     Active Substance: METRONIDAZOLE
     Indication: ROSACEA
  10. LORATADINE. [Concomitant]
     Active Substance: LORATADINE
     Dosage: 10 MILLIGRAM, QD
  11. STELARA [Concomitant]
     Active Substance: USTEKINUMAB
     Dosage: UNK
  12. ACETAMINOPHEN. [Concomitant]
     Active Substance: ACETAMINOPHEN
     Indication: NECK PAIN
  13. ORENCIA [Concomitant]
     Active Substance: ABATACEPT
     Dosage: UNK
  14. ENBREL [Suspect]
     Active Substance: ETANERCEPT
     Indication: RHEUMATOID ARTHRITIS
     Dosage: 50 MILLIGRAM, QWK
     Route: 065
  15. ADVAIR HFA [Concomitant]
     Active Substance: FLUTICASONE PROPIONATE\SALMETEROL XINAFOATE
     Indication: RHINITIS ALLERGIC
  16. FINACEA [Concomitant]
     Active Substance: AZELAIC ACID
     Indication: ROSACEA
  17. XELJANZ [Concomitant]
     Active Substance: TOFACITINIB CITRATE
     Dosage: 11 UNK
  18. FOLIC ACID. [Concomitant]
     Active Substance: FOLIC ACID
     Dosage: 1 MILLIGRAM, QD
  19. PREDNISONE. [Concomitant]
     Active Substance: PREDNISONE
  20. ACTEMRA [Concomitant]
     Active Substance: TOCILIZUMAB
     Dosage: UNK
  21. IBUPROFEN. [Concomitant]
     Active Substance: IBUPROFEN
     Dosage: 800 MILLIGRAM, AS NECESSARY

REACTIONS (8)
  - Injection site reaction [Unknown]
  - Inappropriate schedule of product administration [Unknown]
  - Rheumatoid arthritis [Unknown]
  - Therapy non-responder [Unknown]
  - Pharyngitis [Unknown]
  - Malaise [Unknown]
  - Erythema [Unknown]
  - Adverse event [Unknown]
